FAERS Safety Report 4485832-6 (Version None)
Quarter: 2004Q3

REPORT INFORMATION
  Report Type: 
  Country: None (occurrence: None)
  Receive Date: 20040921
  Receipt Date: 20031105
  Transmission Date: 20050211
  Serious: Yes (Hospitalization)
  Sender: FDA-Public Use
  Company Number: 163-20785-03110118

PATIENT
  Age: 8 Year
  Sex: Male
  Weight: 52 kg

DRUGS (4)
  1. THALOMID [Suspect]
     Indication: EPENDYMOMA
     Dosage: 400-500 MG, DAILY, ORAL
     Route: 048
     Dates: start: 20030608, end: 20040201
  2. CELEBREX [Suspect]
     Indication: EPENDYMOMA
     Dosage: 200/100 MG, 2 X QD, ORAL
     Route: 048
     Dates: start: 20030608, end: 20040207
  3. ETOPOSIDE [Suspect]
     Indication: EPENDYMOMA
     Dosage: 50-100 MG, ONCE EVERY DAY FOR 21
     Dates: start: 20030608, end: 20031003
  4. CYCLOPHOSPHAMIDE [Suspect]
     Indication: EPENDYMOMA
     Dosage: 50 MG, ONCE EVERY 21 DAYS, ORAL
     Route: 048
     Dates: start: 20030608, end: 20031017

REACTIONS (6)
  - CELLULITIS [None]
  - HAEMOGLOBIN DECREASED [None]
  - LEUKOPENIA [None]
  - NEUTROPENIA [None]
  - SKIN PAPILLOMA [None]
  - SYNCOPE [None]
